FAERS Safety Report 17470626 (Version 1)
Quarter: 2020Q1

REPORT INFORMATION
  Report Type: Report from Study
  Country: US (occurrence: US)
  Receive Date: 20200227
  Receipt Date: 20200227
  Transmission Date: 20200409
  Serious: Yes (Death)
  Sender: FDA-Public Use
  Company Number: US-EXELIXIS-CABO-20027742

PATIENT
  Age: 76 Year
  Sex: Male

DRUGS (12)
  1. RANEXA [Concomitant]
     Active Substance: RANOLAZINE
  2. LEVEMIR [Concomitant]
     Active Substance: INSULIN DETEMIR
  3. VIREAD [Concomitant]
     Active Substance: TENOFOVIR DISOPROXIL FUMARATE
  4. CABOMETYX [Suspect]
     Active Substance: CABOZANTINIB S-MALATE
     Indication: HEPATOCELLULAR CARCINOMA
     Dosage: 60 MG, QD
     Route: 048
     Dates: start: 20190214
  5. CABOMETYX [Suspect]
     Active Substance: CABOZANTINIB S-MALATE
     Indication: GALLBLADDER NEOPLASM
  6. CABOMETYX [Suspect]
     Active Substance: CABOZANTINIB S-MALATE
     Indication: BILE DUCT CANCER
  7. LORAZEPAM. [Concomitant]
     Active Substance: LORAZEPAM
  8. JANUMET [Concomitant]
     Active Substance: METFORMIN HYDROCHLORIDE\SITAGLIPTIN PHOSPHATE
  9. NEXAVAR [Concomitant]
     Active Substance: SORAFENIB
  10. LOSARTAN. [Concomitant]
     Active Substance: LOSARTAN
  11. ALFUZOSIN HCL [Concomitant]
     Active Substance: ALFUZOSIN HYDROCHLORIDE
  12. RAPAFLO [Concomitant]
     Active Substance: SILODOSIN

REACTIONS (1)
  - Death [Fatal]

NARRATIVE: CASE EVENT DATE: 20190309
